FAERS Safety Report 19649711 (Version 1)
Quarter: 2021Q3

REPORT INFORMATION
  Report Type: Spontaneous
  Country: ES (occurrence: ES)
  Receive Date: 20210803
  Receipt Date: 20210803
  Transmission Date: 20211014
  Serious: Yes (Other)
  Sender: FDA-Public Use
  Company Number: ES-LUPIN PHARMACEUTICALS INC.-2021-13487

PATIENT
  Age: 2 Year
  Sex: Female

DRUGS (9)
  1. ETHAMBUTOL [Concomitant]
     Active Substance: ETHAMBUTOL HYDROCHLORIDE
     Indication: PULMONARY TUBERCULOSIS
     Dosage: UNK
     Route: 065
  2. PYRAZINAMIDE. [Concomitant]
     Active Substance: PYRAZINAMIDE
     Indication: PULMONARY TUBERCULOSIS
     Dosage: UNK
     Route: 065
  3. ISONIAZID. [Concomitant]
     Active Substance: ISONIAZID
     Indication: PULMONARY TUBERCULOSIS
     Dosage: UNK
     Route: 065
  4. CEFIDEROCOL. [Concomitant]
     Active Substance: CEFIDEROCOL
     Indication: PSEUDOMONAS INFECTION
     Dosage: 60 MILLIGRAM/KILOGRAM, TID (ONCE EVERY 8 HOURS)
     Route: 065
  5. LEVOFLOXACIN. [Concomitant]
     Active Substance: LEVOFLOXACIN
     Indication: PULMONARY TUBERCULOSIS
     Dosage: UNK
     Route: 065
  6. CEFIDEROCOL. [Concomitant]
     Active Substance: CEFIDEROCOL
     Indication: BACTERAEMIA
  7. TEICOPLANIN [Concomitant]
     Active Substance: TEICOPLANIN
     Indication: PSEUDOMONAS INFECTION
     Dosage: UNK
     Route: 065
  8. RIFAMPIN. [Suspect]
     Active Substance: RIFAMPIN
     Indication: PULMONARY TUBERCULOSIS
     Dosage: UNK
     Route: 065
  9. TEICOPLANIN [Concomitant]
     Active Substance: TEICOPLANIN
     Indication: PSEUDOMONAL BACTERAEMIA

REACTIONS (1)
  - Hepatotoxicity [Unknown]
